FAERS Safety Report 15179846 (Version 1)
Quarter: 2018Q3

REPORT INFORMATION
  Report Type: Spontaneous
  Country: ES (occurrence: ES)
  Receive Date: 20180723
  Receipt Date: 20180723
  Transmission Date: 20181010
  Serious: Yes (Hospitalization)
  Sender: FDA-Public Use
  Company Number: PHHY2018ES050871

PATIENT
  Age: 65 Year
  Sex: Male

DRUGS (5)
  1. AMOXICILLIN CLAVULANIC ACID SANDOZ [Suspect]
     Active Substance: AMOXICILLIN\CLAVULANIC ACID
     Indication: PROSTATITIS
     Dosage: 1.5 MG, QD
     Route: 048
     Dates: start: 20170821, end: 20170908
  2. RAMIPRIL. [Concomitant]
     Active Substance: RAMIPRIL
     Indication: HYPERTENSION
     Dosage: 5 MG, QD
     Route: 048
     Dates: start: 20160419, end: 20171006
  3. PRAVASTATINA SODICA [Concomitant]
     Active Substance: PRAVASTATIN SODIUM
     Indication: DYSLIPIDAEMIA
     Dosage: 10 MG, QD
     Route: 048
     Dates: start: 20160419, end: 20171006
  4. MICOFENOLATO DE MOFETILO [Concomitant]
     Indication: LIVER TRANSPLANT
     Dosage: 1 G, QD
     Route: 048
     Dates: start: 20141212
  5. TACROLIMUS. [Concomitant]
     Active Substance: TACROLIMUS
     Indication: LIVER TRANSPLANT
     Dosage: 6 MG, QD
     Route: 048
     Dates: start: 20141212

REACTIONS (2)
  - Dehydration [Recovered/Resolved]
  - Diarrhoea [Recovered/Resolved]

NARRATIVE: CASE EVENT DATE: 201709
